FAERS Safety Report 22877020 (Version 2)
Quarter: 2023Q4

REPORT INFORMATION
  Report Type: Spontaneous
  Country: CA (occurrence: None)
  Receive Date: 20230829
  Receipt Date: 20231103
  Transmission Date: 20240110
  Serious: Yes (Hospitalization)
  Sender: FDA-Public Use
  Company Number: CA-ROCHE-3411699

PATIENT
  Age: 60 Year
  Sex: Male

DRUGS (1)
  1. RITUXIMAB [Suspect]
     Active Substance: RITUXIMAB
     Indication: Myasthenia gravis
     Route: 042

REACTIONS (8)
  - Generalised oedema [Recovering/Resolving]
  - Malaise [Recovering/Resolving]
  - Necrotising soft tissue infection [Recovering/Resolving]
  - Pelvic fluid collection [Recovering/Resolving]
  - Septic shock [Recovering/Resolving]
  - Subcutaneous emphysema [Recovering/Resolving]
  - Off label use [Recovering/Resolving]
  - Wound [Recovering/Resolving]
